FAERS Safety Report 11906226 (Version 1)
Quarter: 2016Q1

REPORT INFORMATION
  Report Type: Spontaneous
  Country: FR (occurrence: FR)
  Receive Date: 20160111
  Receipt Date: 20160111
  Transmission Date: 20160526
  Serious: Yes (Other)
  Sender: FDA-Public Use
  Company Number: FR-JNJFOC-20160105356

PATIENT
  Age: 47 Year
  Sex: Male
  Weight: 84 kg

DRUGS (3)
  1. METHOTREXATE [Concomitant]
     Active Substance: METHOTREXATE
     Route: 065
  2. CODEINE [Concomitant]
     Active Substance: CODEINE
     Route: 065
  3. STELARA [Suspect]
     Active Substance: USTEKINUMAB
     Indication: PSORIASIS
     Route: 058
     Dates: start: 201505, end: 20151026

REACTIONS (3)
  - Vascular dissection [Recovering/Resolving]
  - Meningorrhagia [Recovering/Resolving]
  - Aneurysm [Recovering/Resolving]
